FAERS Safety Report 20806918 (Version 2)
Quarter: 2022Q2

REPORT INFORMATION
  Report Type: Report from Study
  Country: PR (occurrence: PR)
  Receive Date: 20220510
  Receipt Date: 20220515
  Transmission Date: 20220720
  Serious: Yes (Other)
  Sender: FDA-Public Use
  Company Number: PR-ABBVIE-22K-131-4387778-00

PATIENT
  Sex: Female

DRUGS (1)
  1. HUMIRA [Suspect]
     Active Substance: ADALIMUMAB
     Indication: Rheumatoid arthritis
     Route: 058
     Dates: start: 2018

REACTIONS (4)
  - Respiratory failure [Recovered/Resolved]
  - Asthenia [Recovered/Resolved]
  - Dyspnoea [Recovered/Resolved]
  - Dyspnoea [Recovered/Resolved]

NARRATIVE: CASE EVENT DATE: 20180101
